FAERS Safety Report 8781122 (Version 1)
Quarter: 2012Q4

REPORT INFORMATION
  Report Type: 
  Country: US (occurrence: US)
  Receive Date: 20120913
  Receipt Date: 20120913
  Transmission Date: 20130627
  Serious: No
  Sender: FDA-Public Use
  Company Number: US-VERTEX PHARMACEUTICAL INC.-AE-2012-008034

PATIENT
  Sex: Female
  Weight: 68.18 kg

DRUGS (5)
  1. INCIVEK [Suspect]
     Indication: HEPATITIS C
     Route: 048
     Dates: start: 20120512
  2. RIBAVIRIN [Concomitant]
     Indication: HEPATITIS C
     Route: 048
     Dates: start: 20120512
  3. PEGASYS [Concomitant]
     Indication: HEPATITIS C
     Dates: start: 20120512
  4. XANAX [Concomitant]
  5. HYDROCODONE [Concomitant]
     Indication: BACK PAIN

REACTIONS (2)
  - Somnolence [Not Recovered/Not Resolved]
  - Nausea [Not Recovered/Not Resolved]
